FAERS Safety Report 8317610-1 (Version None)
Quarter: 2012Q2

REPORT INFORMATION
  Report Type: 
  Country: None (occurrence: None)
  Receive Date: 20120427
  Receipt Date: 20090608
  Transmission Date: 20120825
  Serious: No
  Sender: FDA-Public Use
  Company Number: US-TEVA-2009006805

PATIENT
  Sex: Male
  Weight: 90.8 kg

DRUGS (10)
  1. CELEBREX [Concomitant]
     Dosage: 200 MILLIGRAM;
     Route: 048
  2. NORVASC [Concomitant]
     Indication: CARDIAC DISORDER
     Route: 048
  3. NUVIGIL [Suspect]
     Indication: SOMNOLENCE
     Dosage: 150 MILLIGRAM;
     Route: 048
     Dates: start: 20090101
  4. FLOMAX [Concomitant]
     Indication: PROSTATOMEGALY
     Route: 048
  5. NEURONTIN [Concomitant]
     Indication: BIPOLAR DISORDER
     Dosage: 600 MILLIGRAM;
     Route: 048
  6. TENORMIN [Concomitant]
     Indication: CARDIAC DISORDER
     Dosage: 100 MILLIGRAM;
     Route: 048
  7. LEXAPRO [Concomitant]
     Indication: DEPRESSION
     Dosage: 10 MILLIGRAM;
     Route: 048
  8. NUVIGIL [Suspect]
     Route: 048
     Dates: start: 20090607
  9. TESTOSTERONE/PROGESTERONE [Concomitant]
     Dosage: 100 MG/50 MG
     Route: 062
  10. CYMBALTA [Concomitant]
     Indication: DEPRESSION
     Route: 048

REACTIONS (3)
  - HEADACHE [None]
  - MUSCLE TIGHTNESS [None]
  - NAUSEA [None]
